FAERS Safety Report 17212923 (Version 1)
Quarter: 2019Q4

REPORT INFORMATION
  Report Type: Spontaneous
  Country: GB (occurrence: GB)
  Receive Date: 20191230
  Receipt Date: 20191230
  Transmission Date: 20200122
  Serious: Yes (Death)
  Sender: FDA-Public Use
  Company Number: GB-TEVA-2019-GB-1159617

PATIENT
  Age: 28 Year
  Sex: Male

DRUGS (7)
  1. ZUCLOPENTHIXOL [Concomitant]
     Active Substance: ZUCLOPENTHIXOL
     Dosage: 20 MILLIGRAM DAILY; 20 MILLIGRAM, NIGHT
     Route: 048
  2. METHADONE [Interacting]
     Active Substance: METHADONE HYDROCHLORIDE
     Dosage: 20 MILLIGRAM, AT NOON. THEN INCREASED TO 35 MG DAILY.
     Route: 048
     Dates: start: 20171204
  3. CLONAZEPAM. [Suspect]
     Active Substance: CLONAZEPAM
     Indication: BEHAVIOUR DISORDER
     Dosage: 6 MILLIGRAM
     Route: 048
     Dates: start: 20171201, end: 20181209
  4. ZUCLOPENTHIXOL DECANOATE [Concomitant]
     Active Substance: ZUCLOPENTHIXOL DECANOATE
     Dosage: 500 MILLIGRAM
  5. METHADONE [Interacting]
     Active Substance: METHADONE HYDROCHLORIDE
     Dosage: 35 MILLIGRAM
     Route: 048
  6. PROCYCLIDINE [Concomitant]
     Active Substance: PROCYCLIDINE
     Dosage: 15 MILLIGRAM
     Route: 048
  7. GABAPENTIN. [Concomitant]
     Active Substance: GABAPENTIN
     Dosage: 900 MILLIGRAM, 300MG IN THE MORNING AND 600MG AT NIGHT
     Route: 048

REACTIONS (2)
  - Respiratory depression [Fatal]
  - Drug interaction [Fatal]

NARRATIVE: CASE EVENT DATE: 20171206
